FAERS Safety Report 20331246 (Version 2)
Quarter: 2022Q1

REPORT INFORMATION
  Report Type: Spontaneous
  Country: GB (occurrence: GB)
  Receive Date: 20220113
  Receipt Date: 20220131
  Transmission Date: 20220423
  Serious: Yes (Death, Hospitalization, Other)
  Sender: FDA-Public Use
  Company Number: GB-MYLANLABS-2021M1056746

PATIENT
  Age: 85 Year
  Sex: Male

DRUGS (3)
  1. CLOZARIL [Suspect]
     Active Substance: CLOZAPINE
     Indication: Schizophrenia
     Dosage: UNK
     Route: 048
     Dates: start: 20210118
  2. CLOZARIL [Suspect]
     Active Substance: CLOZAPINE
     Dosage: 50 MILLIGRAM, AM
     Route: 048
  3. CLOZARIL [Suspect]
     Active Substance: CLOZAPINE
     Dosage: 100 MILLIGRAM, PM
     Route: 048

REACTIONS (15)
  - Pneumonia aspiration [Fatal]
  - COVID-19 pneumonia [Fatal]
  - Asthenia [Fatal]
  - Schizophrenia [Fatal]
  - Anosmia [Unknown]
  - Hypophagia [Unknown]
  - Fall [Unknown]
  - Thrombocytopenia [Not Recovered/Not Resolved]
  - COVID-19 [Unknown]
  - C-reactive protein increased [Unknown]
  - Antipsychotic drug level increased [Unknown]
  - Haemoglobin decreased [Unknown]
  - Eosinophilia [Recovered/Resolved]
  - Lymphocyte count decreased [Not Recovered/Not Resolved]
  - Monocyte count decreased [Unknown]

NARRATIVE: CASE EVENT DATE: 20210825
